FAERS Safety Report 12595075 (Version 1)
Quarter: 2016Q3

REPORT INFORMATION
  Report Type: Spontaneous
  Country: US (occurrence: US)
  Receive Date: 20160726
  Receipt Date: 20160726
  Transmission Date: 20161109
  Serious: No
  Sender: FDA-Public Use
  Company Number: US-UNITED THERAPEUTICS-UNT-2015-016631

PATIENT
  Age: 64 Year
  Sex: Female
  Weight: 63.49 kg

DRUGS (6)
  1. LETAIRIS [Suspect]
     Active Substance: AMBRISENTAN
     Indication: PULMONARY ARTERIAL HYPERTENSION
     Dosage: 10 MG, QD
     Route: 065
     Dates: start: 20151221
  2. ORENITRAM [Suspect]
     Active Substance: TREPROSTINIL
     Indication: PULMONARY ARTERIAL HYPERTENSION
     Dosage: 20 MG, TID
     Route: 048
     Dates: start: 20151111
  3. VELETRI [Suspect]
     Active Substance: EPOPROSTENOL
     Indication: PRODUCT USED FOR UNKNOWN INDICATION
     Route: 065
  4. ORENITRAM [Suspect]
     Active Substance: TREPROSTINIL
     Dosage: 20 MG, BID
     Route: 048
     Dates: start: 20151111
  5. ADCIRCA [Suspect]
     Active Substance: TADALAFIL
     Indication: PRODUCT USED FOR UNKNOWN INDICATION
     Route: 065
  6. WARFARIN [Suspect]
     Active Substance: WARFARIN
     Indication: PRODUCT USED FOR UNKNOWN INDICATION
     Route: 065

REACTIONS (8)
  - Decreased appetite [Unknown]
  - Headache [Unknown]
  - Constipation [Unknown]
  - Diarrhoea [Unknown]
  - Flushing [Unknown]
  - Fatigue [Unknown]
  - Nausea [Unknown]
  - Weight increased [Unknown]

NARRATIVE: CASE EVENT DATE: 20151111
